FAERS Safety Report 5806236-7 (Version None)
Quarter: 2008Q3

REPORT INFORMATION
  Report Type: 
  Country: None (occurrence: None)
  Receive Date: 20080710
  Receipt Date: 20080701
  Transmission Date: 20090109
  Serious: Yes (Other)
  Sender: FDA-Public Use
  Company Number: FR-ROCHE-573677

PATIENT
  Sex: Female

DRUGS (3)
  1. ROCEPHIN [Suspect]
     Indication: HEPATIC HAEMATOMA
     Dosage: FORM: INJECTABLE SOLUTION
     Route: 042
     Dates: start: 20080404, end: 20080411
  2. CIFLOX [Suspect]
     Indication: HEPATIC HAEMATOMA
     Route: 048
     Dates: start: 20080325, end: 20080411
  3. VANCOMYCIN HCL [Concomitant]
     Indication: HEPATIC HAEMATOMA
     Dates: start: 20080317, end: 20080407

REACTIONS (7)
  - EOSINOPHILIA [None]
  - FACE OEDEMA [None]
  - MUCOUS MEMBRANE DISORDER [None]
  - PURPURA [None]
  - PYREXIA [None]
  - RASH MACULO-PAPULAR [None]
  - TOXIC SKIN ERUPTION [None]
